FAERS Safety Report 8925459 (Version 1)
Quarter: 2012Q4

REPORT INFORMATION
  Report Type: 
  Country: IT (occurrence: IT)
  Receive Date: 20121126
  Receipt Date: 20121126
  Transmission Date: 20130627
  Serious: Yes (Hospitalization)
  Sender: FDA-Public Use
  Company Number: PHHY2012IT107589

PATIENT
  Age: 58 Year
  Sex: Male

DRUGS (7)
  1. SANDIMMUN [Suspect]
     Indication: PSORIATIC ARTHROPATHY
     Dosage: 150 mg, daily
     Route: 048
     Dates: start: 20110101, end: 20120701
  2. DEFLAN [Concomitant]
  3. IDEOS [Concomitant]
  4. LUMIGAN [Concomitant]
  5. LANTUS [Concomitant]
  6. MITTOVAL [Concomitant]
  7. GLIBOMET [Concomitant]

REACTIONS (1)
  - Cerebral ischaemia [Recovered/Resolved with Sequelae]
